FAERS Safety Report 4814140-6 (Version None)
Quarter: 2005Q4

REPORT INFORMATION
  Report Type: 
  Country: None (occurrence: None)
  Receive Date: 20051028
  Receipt Date: 20050706
  Transmission Date: 20060501
  Serious: No
  Sender: FDA-Public Use
  Company Number: US-GLAXOSMITHKLINE-A0565261A

PATIENT
  Sex: Female

DRUGS (4)
  1. ADVAIR DISKUS 100/50 [Suspect]
     Indication: DRUG USE FOR UNKNOWN INDICATION
     Route: 055
  2. ALBUTEROL [Concomitant]
  3. PREDNISONE [Concomitant]
     Dosage: 40MG PER DAY
  4. FLONASE [Concomitant]
     Route: 045

REACTIONS (2)
  - PRURITUS GENERALISED [None]
  - RASH GENERALISED [None]
